FAERS Safety Report 4985484-2 (Version None)
Quarter: 2006Q2

REPORT INFORMATION
  Report Type: 
  Country: None (occurrence: None)
  Receive Date: 20060428
  Receipt Date: 20050418
  Transmission Date: 20061013
  Serious: No
  Sender: FDA-Public Use
  Company Number: US-GLAXOSMITHKLINE-A0554503A

PATIENT
  Sex: Female

DRUGS (2)
  1. FLOVENT [Suspect]
     Route: 055
  2. SEREVENT [Concomitant]

REACTIONS (4)
  - DYSPHONIA [None]
  - PRURITUS [None]
  - SKIN LESION [None]
  - URTICARIA [None]
